FAERS Safety Report 25648433 (Version 1)
Quarter: 2025Q3

REPORT INFORMATION
  Report Type: Report from Study
  Country: US (occurrence: US)
  Receive Date: 20250806
  Receipt Date: 20250806
  Transmission Date: 20251021
  Serious: No
  Sender: SUNOVION
  Company Number: US-SUMITOMO PHARMA SWITZERLAND GMBH-2025SPA009785

PATIENT
  Age: 76 Year
  Sex: Male

DRUGS (9)
  1. ORGOVYX [Suspect]
     Active Substance: RELUGOLIX
     Indication: Prostate cancer
     Route: 048
  2. ORGOVYX [Suspect]
     Active Substance: RELUGOLIX
     Route: 048
  3. ELIGARD [Concomitant]
     Active Substance: LEUPROLIDE ACETATE
  4. ESOMEPRAZOLE [Concomitant]
     Active Substance: ESOMEPRAZOLE
  5. GARLIC OIL [Concomitant]
     Active Substance: GARLIC OIL
  6. LIDOCAINE AND PRILOCAINE [Concomitant]
     Active Substance: LIDOCAINE\PRILOCAINE
  7. LUPRON [Concomitant]
     Active Substance: LEUPROLIDE ACETATE
  8. MAGNESIUM [Concomitant]
     Active Substance: MAGNESIUM
  9. PENTOXIFYLLINE [Concomitant]
     Active Substance: PENTOXIFYLLINE

REACTIONS (2)
  - Condition aggravated [Unknown]
  - Abdominal pain upper [Unknown]
